FAERS Safety Report 8182439-4 (Version None)
Quarter: 2012Q1

REPORT INFORMATION
  Report Type: 
  Country: None (occurrence: None)
  Receive Date: 20120305
  Receipt Date: 20120223
  Transmission Date: 20120608
  Serious: Yes (Other)
  Sender: FDA-Public Use
  Company Number: US-BIOGENIDEC-2011BI027958

PATIENT
  Age: 34 Year
  Sex: Female

DRUGS (5)
  1. MULTI-VITAMINS [Concomitant]
  2. SYNTHROID [Concomitant]
  3. METFORMIN HCL [Concomitant]
     Indication: POLYCYSTIC OVARIES
  4. ZOLOFT [Concomitant]
     Dates: start: 20111003
  5. TYSABRI [Suspect]
     Indication: MULTIPLE SCLEROSIS
     Route: 042
     Dates: start: 20080211, end: 20110411

REACTIONS (2)
  - GESTATIONAL DIABETES [None]
  - PREGNANCY [None]
